FAERS Safety Report 5209763-9 (Version None)
Quarter: 2006Q4

REPORT INFORMATION
  Report Type: 
  Country: None (occurrence: None)
  Receive Date: 20061128
  Receipt Date: 20060302
  Transmission Date: 20070319
  Serious: Yes (Other)
  Sender: FDA-Public Use
  Company Number: 2006031894

PATIENT
  Age: 86 Year
  Sex: Female

DRUGS (10)
  1. TIKOSYN [Suspect]
     Indication: ATRIAL FIBRILLATION
     Dosage: 250 MCG (125 MCG, 1 IN 12 HR)
     Dates: start: 20001201
  2. LASIX [Concomitant]
  3. HYDRALAZINE HCL [Concomitant]
  4. DIOVAN [Concomitant]
  5. POTASSIUM (POTASSIUM) [Concomitant]
  6. THEOPHYLLINE [Concomitant]
  7. LEVOTHYROXINE SODIUM [Concomitant]
  8. COUMADIN [Concomitant]
  9. CARDIZEM [Concomitant]
  10. DIGOXIN [Concomitant]

REACTIONS (1)
  - ATRIAL FIBRILLATION [None]
